FAERS Safety Report 5805671-0 (Version None)
Quarter: 2008Q3

REPORT INFORMATION
  Report Type: 
  Country: None (occurrence: None)
  Receive Date: 20080710
  Receipt Date: 20080616
  Transmission Date: 20090109
  Serious: No
  Sender: FDA-Public Use
  Company Number: A0728318A

PATIENT
  Age: 43 Year
  Sex: Female
  Weight: 131.8 kg

DRUGS (7)
  1. TYKERB [Suspect]
     Route: 048
  2. LIPITOR [Concomitant]
  3. ZANTAC [Concomitant]
  4. WELLBUTRIN [Concomitant]
  5. HYDROCHLOROTHIAZIDE [Concomitant]
  6. HERCEPTIN [Concomitant]
  7. TRAZODONE HCL [Concomitant]

REACTIONS (4)
  - OEDEMA [None]
  - PARONYCHIA [None]
  - SKIN LESION [None]
  - STAPHYLOCOCCAL INFECTION [None]
